FAERS Safety Report 24261706 (Version 1)
Quarter: 2024Q3

REPORT INFORMATION
  Report Type: Spontaneous
  Country: US (occurrence: US)
  Receive Date: 20240829
  Receipt Date: 20240829
  Transmission Date: 20241017
  Serious: Yes (Other)
  Sender: BAXTER
  Company Number: US-BAXTER-2024BAX023556

PATIENT
  Age: 52 Year
  Sex: Male

DRUGS (3)
  1. CARDENE [Suspect]
     Active Substance: NICARDIPINE HYDROCHLORIDE
     Indication: Blood pressure management
     Dosage: NICARDIPINE INFUSION WAS ADMINISTERED INTO A LEFT FOREARM VEIN AT A RATE OF 2.5 MG/H
     Route: 042
  2. CARDENE [Suspect]
     Active Substance: NICARDIPINE HYDROCHLORIDE
     Dosage: REQUIRED UPWARD TITRATION OF THIS DRUG IN INCREMENTS OF 2.5 MG/H EVERY 5-15 MIN AS THE SYSTOLIC BLOO
     Route: 042
  3. CARDENE [Suspect]
     Active Substance: NICARDIPINE HYDROCHLORIDE
     Dosage: ABOUT 1 MIN AFTER THE INFUSION RATE WAS INCREASED TO 12.5 MG/H
     Route: 042

REACTIONS (8)
  - Anaphylactoid reaction [Recovered/Resolved]
  - Erythema [Recovered/Resolved]
  - Swelling [Recovered/Resolved]
  - Urticaria [Recovered/Resolved]
  - Tachycardia [Recovered/Resolved]
  - Hyperhidrosis [Recovered/Resolved]
  - Hypoxia [Recovered/Resolved]
  - Wheezing [Recovered/Resolved]
